FAERS Safety Report 5971643-9 (Version None)
Quarter: 2008Q4

REPORT INFORMATION
  Report Type: 
  Country: None (occurrence: None)
  Receive Date: 20081201
  Receipt Date: 20081121
  Transmission Date: 20090506
  Serious: Yes (Other)
  Sender: FDA-Public Use
  Company Number: JP-BAYER-200812618BYL

PATIENT
  Age: 73 Year
  Sex: Female
  Weight: 46 kg

DRUGS (9)
  1. CIPROXAN-I.V. [Suspect]
     Indication: PNEUMONIA CYTOMEGALOVIRAL
     Dates: start: 20070927, end: 20071001
  2. GANCICLOVIR [Suspect]
     Indication: PNEUMONIA CYTOMEGALOVIRAL
     Dates: start: 20070921, end: 20071001
  3. SULFAMETHOXAZOLE AND TRIMETHOPRIM [Concomitant]
     Indication: PNEUMOCYSTIS JIROVECI PNEUMONIA
     Dates: start: 20070923, end: 20071001
  4. PANIPENEM [Concomitant]
     Dates: end: 20071001
  5. VORICONAZOLE [Concomitant]
     Dates: end: 20071001
  6. MICAFUNGIN SODIUM [Concomitant]
     Indication: PNEUMONIA CYTOMEGALOVIRAL
     Dates: start: 20070921, end: 20070926
  7. POLYGAM S/D [Concomitant]
  8. FRAGMIN [Concomitant]
     Indication: HAEMODIALYSIS
     Dosage: AS USED: 4000 IU
     Route: 010
     Dates: start: 20071001
  9. FRAGMIN [Concomitant]
     Dosage: AS USED: 2000 IU
     Route: 010
     Dates: start: 20071001

REACTIONS (1)
  - LUNG DISORDER [None]
